FAERS Safety Report 6563330-3 (Version None)
Quarter: 2010Q1

REPORT INFORMATION
  Report Type: 
  Country: None (occurrence: None)
  Receive Date: 20100130
  Receipt Date: 20091211
  Transmission Date: 20100710
  Serious: No
  Sender: FDA-Public Use
  Company Number: US-ABBOTT-09P-163-0613983-00

PATIENT
  Sex: Female
  Weight: 73.548 kg

DRUGS (2)
  1. HUMIRA [Suspect]
     Indication: RHEUMATOID ARTHRITIS
     Route: 058
     Dates: start: 20041201, end: 20090201
  2. HUMIRA [Suspect]
     Route: 058
     Dates: start: 20091107

REACTIONS (3)
  - ACTIVITIES OF DAILY LIVING IMPAIRED [None]
  - DIVERTICULITIS [None]
  - RHEUMATOID ARTHRITIS [None]
